FAERS Safety Report 9835365 (Version 1)
Quarter: 2014Q1

REPORT INFORMATION
  Report Type: Spontaneous
  Country: US (occurrence: US)
  Receive Date: 20140122
  Receipt Date: 20140122
  Transmission Date: 20141002
  Serious: No
  Sender: FDA-Public Use
  Company Number: US-BRISTOL-MYERS SQUIBB COMPANY-19508951

PATIENT
  Age: 62 Year
  Sex: Male
  Weight: 131.06 kg

DRUGS (4)
  1. ELIQUIS [Suspect]
     Indication: ATRIAL FIBRILLATION
  2. TOPROL [Concomitant]
     Dosage: HS
  3. ASPIRIN [Concomitant]
  4. DIOVAN [Concomitant]

REACTIONS (4)
  - Paraesthesia [Unknown]
  - Hypoaesthesia [Unknown]
  - Urticaria [Unknown]
  - Fatigue [Unknown]
